FAERS Safety Report 25495343 (Version 1)
Quarter: 2025Q2

REPORT INFORMATION
  Report Type: Spontaneous
  Country: AU (occurrence: AU)
  Receive Date: 20250630
  Receipt Date: 20250630
  Transmission Date: 20250716
  Serious: Yes (Disabling, Other)
  Sender: ELI LILLY AND COMPANY
  Company Number: AU-ELI_LILLY_AND_COMPANY-AU202506022943

PATIENT
  Sex: Male

DRUGS (13)
  1. FLUOXETINE HYDROCHLORIDE [Suspect]
     Active Substance: FLUOXETINE HYDROCHLORIDE
     Indication: Product used for unknown indication
     Route: 065
  2. CARBAMAZEPINE [Suspect]
     Active Substance: CARBAMAZEPINE
     Indication: Seizure
     Route: 065
  3. TOPIRAMATE [Suspect]
     Active Substance: TOPIRAMATE
     Indication: Seizure
     Route: 065
  4. LAMOTRIGINE [Concomitant]
     Active Substance: LAMOTRIGINE
     Indication: Epilepsy
     Dosage: 300 MG, DAILY
     Route: 065
  5. CLOBAZAM [Concomitant]
     Active Substance: CLOBAZAM
     Indication: Epilepsy
     Route: 065
  6. PHENOBARBITAL [Concomitant]
     Active Substance: PHENOBARBITAL
     Indication: Epilepsy
     Route: 065
  7. RUFINAMIDE [Concomitant]
     Active Substance: RUFINAMIDE
     Indication: Epilepsy
     Dosage: 1400 MG, DAILY
     Route: 065
  8. SULTHIAME [Concomitant]
     Active Substance: SULTHIAME
     Indication: Epilepsy
     Route: 065
  9. ZONISAMIDE [Concomitant]
     Active Substance: ZONISAMIDE
     Indication: Product used for unknown indication
     Route: 065
  10. ZONISAMIDE [Concomitant]
     Active Substance: ZONISAMIDE
     Indication: Epilepsy
     Route: 065
  11. CANNABIDIOL [Concomitant]
     Active Substance: CANNABIDIOL
     Indication: Seizure
     Route: 065
  12. VALPROATE [Concomitant]
     Active Substance: VALPROIC ACID
     Indication: Seizure
     Route: 065
  13. VALPROATE [Concomitant]
     Active Substance: VALPROIC ACID
     Indication: Product used for unknown indication
     Route: 065

REACTIONS (7)
  - Blindness cortical [Unknown]
  - Intellectual disability [Unknown]
  - Seizure [Unknown]
  - Fall [Unknown]
  - Injury [Unknown]
  - Mobility decreased [Unknown]
  - Mood swings [Unknown]
